APPROVED DRUG PRODUCT: NITROFURAZONE
Active Ingredient: NITROFURAZONE
Strength: 0.2%
Dosage Form/Route: OINTMENT;TOPICAL
Application: A084393 | Product #001
Applicant: LANNETT CO INC
Approved: Approved Prior to Jan 1, 1982 | RLD: No | RS: No | Type: DISCN